FAERS Safety Report 6332576-1 (Version None)
Quarter: 2009Q3

REPORT INFORMATION
  Report Type: 
  Country: None (occurrence: None)
  Receive Date: 20090828
  Receipt Date: 20090821
  Transmission Date: 20100115
  Serious: Yes (Hospitalization)
  Sender: FDA-Public Use
  Company Number: FR-JNJFOC-20090806333

PATIENT
  Age: 21 Year
  Sex: Male

DRUGS (1)
  1. RISPERDAL CONSTA [Suspect]
     Indication: SCHIZOPHRENIA
     Route: 030

REACTIONS (5)
  - ABNORMAL BEHAVIOUR [None]
  - AGGRESSION [None]
  - DELUSION [None]
  - HALLUCINATION [None]
  - PSYCHOTIC DISORDER [None]
